FAERS Safety Report 7987357-X (Version None)
Quarter: 2011Q4

REPORT INFORMATION
  Report Type: 
  Country: None (occurrence: None)
  Receive Date: 20111216
  Receipt Date: 20111212
  Transmission Date: 20120403
  Serious: Yes (Life-Threatening)
  Sender: FDA-Public Use
  Company Number: CL-ASTRAZENECA-2011SE74869

PATIENT
  Age: 19 Year
  Sex: Male
  Weight: 52 kg

DRUGS (2)
  1. LIDOCAINE [Suspect]
     Indication: ANAESTHESIA
     Route: 053
  2. BUPIVACAINE HCL [Suspect]
     Indication: ANAESTHESIA
     Route: 053

REACTIONS (1)
  - ACUTE PULMONARY OEDEMA [None]
